FAERS Safety Report 16484869 (Version 1)
Quarter: 2019Q2

REPORT INFORMATION
  Report Type: Spontaneous
  Country: US (occurrence: US)
  Receive Date: 20190627
  Receipt Date: 20190627
  Transmission Date: 20190711
  Serious: No
  Sender: FDA-Public Use
  Company Number: US-GLAXOSMITHKLINE-US2019AMR113835

PATIENT
  Sex: Male

DRUGS (2)
  1. ROPINIROLE TABLET [Suspect]
     Active Substance: ROPINIROLE
     Indication: PERONEAL NERVE PALSY
     Dosage: UNK UNK, QD
     Route: 048
  2. ROPINIROLE TABLET [Suspect]
     Active Substance: ROPINIROLE
     Indication: GAIT DISTURBANCE

REACTIONS (2)
  - Drug ineffective [Unknown]
  - Drug hypersensitivity [Unknown]
